FAERS Safety Report 19701031 (Version 1)
Quarter: 2021Q3

REPORT INFORMATION
  Report Type: Report from Study
  Country: US (occurrence: US)
  Receive Date: 20210814
  Receipt Date: 20210814
  Transmission Date: 20211014
  Serious: Yes (Hospitalization)
  Sender: FDA-Public Use
  Company Number: US-JNJFOC-20210460860

PATIENT
  Age: 3 Decade
  Sex: Female

DRUGS (1)
  1. MACITENTAN [Suspect]
     Active Substance: MACITENTAN
     Indication: PRODUCT USED FOR UNKNOWN INDICATION
     Route: 048
     Dates: start: 20210424

REACTIONS (3)
  - Gallbladder disorder [Not Recovered/Not Resolved]
  - Pulmonary hypertension [Unknown]
  - Cardiac failure [Unknown]

NARRATIVE: CASE EVENT DATE: 2021
